FAERS Safety Report 4535416-6 (Version None)
Quarter: 2004Q4

REPORT INFORMATION
  Report Type: 
  Country: None (occurrence: None)
  Receive Date: 20041214
  Receipt Date: 20041001
  Transmission Date: 20050328
  Serious: No
  Sender: FDA-Public Use
  Company Number: USA041080009

PATIENT
  Sex: Female

DRUGS (1)
  1. CIALIS [Suspect]

REACTIONS (2)
  - MUSCLE CRAMP [None]
  - MYALGIA [None]
